FAERS Safety Report 8500353-9 (Version None)
Quarter: 2012Q3

REPORT INFORMATION
  Report Type: 
  Country: None (occurrence: None)
  Receive Date: 20120703
  Receipt Date: 20120703
  Transmission Date: 20120928
  Serious: Yes (Hospitalization)
  Sender: FDA-Public Use
  Company Number: None

PATIENT
  Sex: Female
  Weight: 63.5 kg

DRUGS (1)
  1. GEMCITABINE HYDROCHLORIDE [Suspect]
     Dosage: TOTAL DOSE 3974.5 MG
     Dates: start: 20110906, end: 20111018

REACTIONS (8)
  - CLOSTRIDIUM DIFFICILE COLITIS [None]
  - URINARY TRACT INFECTION [None]
  - HYPOTENSION [None]
  - TACHYCARDIA [None]
  - EJECTION FRACTION DECREASED [None]
  - KLEBSIELLA TEST POSITIVE [None]
  - ESCHERICHIA TEST POSITIVE [None]
  - SEPSIS [None]
